FAERS Safety Report 6986894-4 (Version None)
Quarter: 2010Q3

REPORT INFORMATION
  Report Type: 
  Country: None (occurrence: None)
  Receive Date: 20100915
  Receipt Date: 20090817
  Transmission Date: 20110219
  Serious: No
  Sender: FDA-Public Use
  Company Number: US-WYE-H10627909

PATIENT
  Sex: Female
  Weight: 88.53 kg

DRUGS (3)
  1. PRISTIQ [Suspect]
     Indication: ANXIETY
     Route: 048
     Dates: start: 20080101
  2. PRISTIQ [Suspect]
     Indication: DEPRESSION
  3. LYRICA [Concomitant]

REACTIONS (2)
  - DIZZINESS [None]
  - DRUG WITHDRAWAL SYNDROME [None]
